FAERS Safety Report 24806292 (Version 1)
Quarter: 2025Q1

REPORT INFORMATION
  Report Type: Spontaneous
  Country: US (occurrence: US)
  Receive Date: 20250103
  Receipt Date: 20250103
  Transmission Date: 20250409
  Serious: No
  Sender: ELI LILLY AND COMPANY
  Company Number: US-ELI_LILLY_AND_COMPANY-US202501000910

PATIENT
  Age: 45 Year
  Sex: Female

DRUGS (5)
  1. OLUMIANT [Suspect]
     Active Substance: BARICITINIB
     Indication: Alopecia areata
     Dosage: 2 MG, DAILY AT MID-DAY
     Route: 048
     Dates: start: 202406
  2. OLUMIANT [Suspect]
     Active Substance: BARICITINIB
     Dosage: 2 MG, EACH EVENING
     Route: 048
  3. LURASIDONE [Suspect]
     Active Substance: LURASIDONE
     Indication: Product used for unknown indication
     Route: 065
  4. LURASIDONE [Suspect]
     Active Substance: LURASIDONE
     Route: 065
  5. LURASIDONE [Suspect]
     Active Substance: LURASIDONE
     Route: 065

REACTIONS (2)
  - Vomiting projectile [Recovered/Resolved]
  - Nausea [Recovered/Resolved]
